FAERS Safety Report 9714727 (Version 4)
Quarter: 2013Q4

REPORT INFORMATION
  Report Type: Spontaneous
  Country: CN (occurrence: None)
  Receive Date: 20131125
  Receipt Date: 20131212
  Transmission Date: 20140711
  Serious: Yes (Life-Threatening, Hospitalization)
  Sender: FDA-Public Use
  Company Number: SYM-2013-13294

PATIENT
  Age: 56 Year
  Sex: Female

DRUGS (10)
  1. 5-FU (FLUOROURACIL) [Suspect]
     Indication: COLORECTAL CANCER METASTATIC
     Route: 040
     Dates: start: 20130829, end: 20130829
  2. BLINDED THERAPY (OTHER THERAPEUTIC PRODUCTS) (SOLUTION FOR INFUSION) (NULL) [Suspect]
     Indication: COLORECTAL CANCER METASTATIC
     Route: 041
     Dates: start: 20130829, end: 20130829
  3. IRINOTECAN [Suspect]
     Indication: COLORECTAL CANCER METASTATIC
     Route: 041
     Dates: start: 20130829, end: 20130829
  4. LEUCOVORIN (FOLINIC ACID) (SOLUTION FOR INFUSION) (FOLINIC ACID) [Suspect]
     Indication: COLORECTAL CANCER METASTATIC
     Route: 041
     Dates: start: 20130829, end: 20130829
  5. BACERIA NOS/GROWTH HORMONE (BACTERIA NOS) (BACTERIA NOS) [Concomitant]
  6. MECOBALAMIN (MECOBALAMIN) (MECOBALAMIN) [Concomitant]
  7. CELECOXIB (CELECOXIB) (CELECOXIB) [Concomitant]
  8. PLANT ALKALOIDS AND OTHER NATURAL PRODUCTS (PLANT ALKALOSIDS AND OTHER NATURAL PRODUCTS) [Concomitant]
  9. AMLODIPINE (AMLODIPINE) (AMLODIPINE) [Concomitant]
  10. OXYCODONE (OXYCODONE) (OXYCODONE) [Concomitant]

REACTIONS (5)
  - Haematemesis [None]
  - Haemorrhage [None]
  - Gastrointestinal haemorrhage [None]
  - Thrombocytopenia [None]
  - Haemoptysis [None]
